FAERS Safety Report 12661570 (Version 2)
Quarter: 2016Q3

REPORT INFORMATION
  Report Type: Spontaneous
  Country: US (occurrence: US)
  Receive Date: 20160817
  Receipt Date: 20160831
  Transmission Date: 20161109
  Serious: No
  Sender: FDA-Public Use
  Company Number: US-PFIZER INC-2016385758

PATIENT
  Age: 75 Year
  Sex: Female

DRUGS (2)
  1. GABAPENTIN. [Suspect]
     Active Substance: GABAPENTIN
     Indication: NEUROPATHY PERIPHERAL
     Dosage: A HIGH DOSE, MAYBE 800MG (ALSO MENTIONED HIGHEST DOSE AVAILABLE)
     Dates: end: 2016
  2. GABAPENTIN. [Suspect]
     Active Substance: GABAPENTIN
     Indication: BACK PAIN

REACTIONS (3)
  - Pain [Unknown]
  - Drug tolerance [Recovered/Resolved]
  - Condition aggravated [Unknown]
